FAERS Safety Report 8971632 (Version 1)
Quarter: 2012Q4

REPORT INFORMATION
  Report Type: 
  Country: US (occurrence: US)
  Receive Date: 20121217
  Receipt Date: 20121217
  Transmission Date: 20130627
  Serious: Yes (Other)
  Sender: FDA-Public Use
  Company Number: US-ROCHE-1165091

PATIENT
  Sex: Male

DRUGS (2)
  1. ZELBORAF [Suspect]
     Indication: MALIGNANT MELANOMA
     Route: 048
     Dates: end: 201209
  2. ZELBORAF [Suspect]
     Route: 048

REACTIONS (8)
  - Malignant neoplasm of eyelid [Unknown]
  - Diarrhoea [Unknown]
  - Sciatica [Recovered/Resolved]
  - Alopecia [Unknown]
  - Fatigue [Unknown]
  - Acne [Unknown]
  - Photosensitivity reaction [Unknown]
  - Hyperkeratosis [Unknown]
